FAERS Safety Report 4441392-7 (Version None)
Quarter: 2004Q3

REPORT INFORMATION
  Report Type: 
  Country: None (occurrence: None)
  Receive Date: 20040728
  Receipt Date: 20040510
  Transmission Date: 20050211
  Serious: No
  Sender: FDA-Public Use
  Company Number: USA040567010

PATIENT
  Age: 15 Year
  Sex: Male
  Weight: 55 kg

DRUGS (4)
  1. STRATTERA [Suspect]
     Dosage: 50 MG IN THE MORNING
     Dates: start: 20030701
  2. SINGULAIR [Concomitant]
  3. ZYRTEC [Concomitant]
  4. MULTI-VITAMINS [Concomitant]

REACTIONS (4)
  - MALAISE [None]
  - NAUSEA [None]
  - VOMITING [None]
  - WEIGHT INCREASED [None]
